FAERS Safety Report 8910575 (Version 1)
Quarter: 2012Q4

REPORT INFORMATION
  Report Type: 
  Country: US (occurrence: US)
  Receive Date: 20121114
  Receipt Date: 20121114
  Transmission Date: 20130627
  Serious: Yes (Other)
  Sender: FDA-Public Use
  Company Number: US-GLAXOSMITHKLINE-A1000329A

PATIENT
  Age: 81 Year
  Sex: Female

DRUGS (3)
  1. PROMACTA [Suspect]
     Indication: IDIOPATHIC THROMBOCYTOPENIC PURPURA
     Route: 048
     Dates: end: 201111
  2. THYROID MEDICATION [Concomitant]
  3. GABAPENTIN [Concomitant]

REACTIONS (1)
  - Uterine haemorrhage [Not Recovered/Not Resolved]
